FAERS Safety Report 15941617 (Version 1)
Quarter: 2019Q1

REPORT INFORMATION
  Report Type: Spontaneous
  Country: US (occurrence: US)
  Receive Date: 20190208
  Receipt Date: 20190208
  Transmission Date: 20190417
  Serious: Yes (Other)
  Sender: FDA-Public Use
  Company Number: None

PATIENT
  Age: 46 Year
  Sex: Female
  Weight: 56.25 kg

DRUGS (1)
  1. TAMSULOSIN HCL [Suspect]
     Active Substance: TAMSULOSIN HYDROCHLORIDE
     Indication: NEPHROLITHIASIS
     Route: 048
     Dates: start: 20180517, end: 20180625

REACTIONS (2)
  - Product substitution issue [None]
  - Rash pruritic [None]

NARRATIVE: CASE EVENT DATE: 20180625
